FAERS Safety Report 18033129 (Version 1)
Quarter: 2020Q3

REPORT INFORMATION
  Report Type: Spontaneous
  Country: SE (occurrence: SE)
  Receive Date: 20200716
  Receipt Date: 20200716
  Transmission Date: 20201103
  Serious: Yes (Other)
  Sender: FDA-Public Use
  Company Number: SE-MYLANLABS-2020M1063276

PATIENT
  Sex: Male
  Weight: 105 kg

DRUGS (1)
  1. DESLORATADIN MYLAN 5 MG FILMDRAGERAD TABLETT [Suspect]
     Active Substance: DESLORATADINE
     Indication: PRODUCT USED FOR UNKNOWN INDICATION
     Dosage: 5 MILLIGRAM, TOTAL

REACTIONS (2)
  - Balance disorder [Recovered/Resolved]
  - Hallucination [Recovered/Resolved]
